FAERS Safety Report 19184039 (Version 2)
Quarter: 2021Q4

REPORT INFORMATION
  Report Type: Report from Study
  Country: TW (occurrence: TW)
  Receive Date: 20210427
  Receipt Date: 20211105
  Transmission Date: 20220303
  Serious: Yes (Other)
  Sender: FDA-Public Use
  Company Number: TW-NOVARTISPH-NVSC2021TW087349

PATIENT
  Age: 32 Year
  Sex: Male

DRUGS (3)
  1. COSENTYX [Suspect]
     Active Substance: SECUKINUMAB
     Indication: Psoriasis
     Dosage: 300 MG (AS REQUIRED)
     Route: 058
     Dates: start: 20200425
  2. CLOBETASOL [Concomitant]
     Active Substance: CLOBETASOL
     Indication: Psoriasis
     Dosage: EVERY OTHER DAY
     Route: 065
     Dates: start: 20210429
  3. CLOBETASOL PROPIONATE [Concomitant]
     Active Substance: CLOBETASOL PROPIONATE
     Indication: Product used for unknown indication
     Dosage: UNK, BID
     Route: 065
     Dates: start: 20210429, end: 20210527

REACTIONS (8)
  - Psoriatic arthropathy [Unknown]
  - Blister [Unknown]
  - Dyshidrotic eczema [Unknown]
  - Folliculitis [Unknown]
  - Rash erythematous [Unknown]
  - Pain of skin [Unknown]
  - Lymphocyte count decreased [Unknown]
  - Mean cell haemoglobin concentration [Unknown]

NARRATIVE: CASE EVENT DATE: 20200618
